FAERS Safety Report 10063240 (Version 1)
Quarter: 2014Q2

REPORT INFORMATION
  Report Type: Report from Study
  Country: US (occurrence: US)
  Receive Date: 20140407
  Receipt Date: 20140407
  Transmission Date: 20141212
  Serious: Yes (Other)
  Sender: FDA-Public Use
  Company Number: US-EXELIXIS-XL18414004139

PATIENT
  Age: 66 Year
  Sex: Female

DRUGS (4)
  1. XL184 [Suspect]
     Indication: BLADDER TRANSITIONAL CELL CARCINOMA
     Dosage: 60 MG, QD
     Route: 048
     Dates: start: 20131105, end: 20131216
  2. XL184 [Suspect]
     Dosage: 40 MG, QD
     Route: 048
     Dates: start: 20131220
  3. AMLODIPINE [Concomitant]
  4. ZOFRAN [Concomitant]

REACTIONS (6)
  - Hypothyroidism [Recovered/Resolved]
  - Platelet count decreased [Recovering/Resolving]
  - Dysgeusia [Unknown]
  - Neutrophil count decreased [Recovering/Resolving]
  - Dry mouth [Recovered/Resolved]
  - Headache [Recovered/Resolved]
